FAERS Safety Report 9357153 (Version 1)
Quarter: 2013Q2

REPORT INFORMATION
  Report Type: Spontaneous
  Country: US (occurrence: US)
  Receive Date: 20130620
  Receipt Date: 20130620
  Transmission Date: 20140414
  Serious: No
  Sender: FDA-Public Use
  Company Number: US-BIOGENIDEC-2013BI051938

PATIENT
  Sex: Male

DRUGS (3)
  1. AVONEX [Suspect]
     Indication: MULTIPLE SCLEROSIS
     Route: 030
     Dates: start: 20110202
  2. ASPIRIN [Concomitant]
     Indication: INFLUENZA LIKE ILLNESS
  3. ASPIRIN [Concomitant]
     Indication: NASOPHARYNGITIS

REACTIONS (3)
  - Psoriasis [Not Recovered/Not Resolved]
  - Nasopharyngitis [Unknown]
  - Influenza like illness [Not Recovered/Not Resolved]
